FAERS Safety Report 19685180 (Version 2)
Quarter: 2021Q3

REPORT INFORMATION
  Report Type: Report from Study
  Country: US (occurrence: US)
  Receive Date: 20210811
  Receipt Date: 20210910
  Transmission Date: 20211014
  Serious: Yes (Hospitalization)
  Sender: FDA-Public Use
  Company Number: US-JNJFOC-20210807139

PATIENT
  Age: 66 Year
  Sex: Female
  Weight: 55.5 kg

DRUGS (4)
  1. SILDENAFIL CITRATE. [Concomitant]
     Active Substance: SILDENAFIL CITRATE
  2. SELEXIPAG [Suspect]
     Active Substance: SELEXIPAG
     Route: 048
  3. LETAIRIS [Concomitant]
     Active Substance: AMBRISENTAN
  4. SELEXIPAG [Suspect]
     Active Substance: SELEXIPAG
     Indication: PULMONARY HYPERTENSION
     Route: 048

REACTIONS (3)
  - Pulmonary arterial hypertension [Unknown]
  - Abdominal discomfort [Unknown]
  - Fluid retention [Unknown]

NARRATIVE: CASE EVENT DATE: 202107
